FAERS Safety Report 4448363-5 (Version None)
Quarter: 2004Q3

REPORT INFORMATION
  Report Type: 
  Country: None (occurrence: None)
  Receive Date: 20040910
  Receipt Date: 20040910
  Transmission Date: 20050211
  Serious: No
  Sender: FDA-Public Use
  Company Number: None

PATIENT
  Age: 46 Year
  Sex: Female

DRUGS (2)
  1. REMICADE [Suspect]
     Indication: PSORIATIC ARTHROPATHY
     Dates: start: 20040729, end: 20040729
  2. REMICADE [Suspect]
     Indication: RHEUMATOID ARTHRITIS
     Dates: start: 20040729, end: 20040729

REACTIONS (4)
  - CONVULSION [None]
  - DYSKINESIA [None]
  - DYSPNOEA [None]
  - SPEECH DISORDER [None]
